FAERS Safety Report 20988391 (Version 3)
Quarter: 2022Q3

REPORT INFORMATION
  Report Type: Spontaneous
  Country: US (occurrence: US)
  Receive Date: 20220621
  Receipt Date: 20220708
  Transmission Date: 20221027
  Serious: Yes (Hospitalization, Other)
  Sender: FDA-Public Use
  Company Number: US-BAYER-2022A083103

PATIENT
  Sex: Female

DRUGS (1)
  1. CIPRO [Suspect]
     Active Substance: CIPROFLOXACIN HYDROCHLORIDE
     Dosage: UNK
     Dates: start: 202203

REACTIONS (10)
  - Neuropathy peripheral [None]
  - Hypoaesthesia [None]
  - Paraesthesia [None]
  - Pain [None]
  - Musculoskeletal pain [None]
  - Urinary incontinence [None]
  - Anxiety [None]
  - Sacroiliac joint dysfunction [None]
  - Pain [None]
  - Pain [None]

NARRATIVE: CASE EVENT DATE: 20220301
